FAERS Safety Report 6150880-7 (Version None)
Quarter: 2009Q2

REPORT INFORMATION
  Report Type: 
  Country: None (occurrence: None)
  Receive Date: 20090406
  Receipt Date: 20090323
  Transmission Date: 20091009
  Serious: Yes (Hospitalization, Other)
  Sender: FDA-Public Use
  Company Number: THYM-11475

PATIENT
  Age: 24 Year
  Sex: Female
  Weight: 88 kg

DRUGS (5)
  1. THYMOGLOBULIN [Suspect]
     Indication: RENAL TRANSPLANT
     Dosage: 175 MG, QD, INTRAVENOUS
     Route: 042
     Dates: start: 20070419, end: 20070422
  2. TACROLIMUS [Concomitant]
  3. MYCOPHENOLIC ACID [Concomitant]
  4. PREDNISONE TAB [Concomitant]
  5. METHYLPREDNISOLONE 16MG TAB [Concomitant]

REACTIONS (5)
  - HEART RATE INCREASED [None]
  - HYPOPHAGIA [None]
  - MOBILITY DECREASED [None]
  - PAIN IN EXTREMITY [None]
  - SERUM SICKNESS [None]
